FAERS Safety Report 12969296 (Version 2)
Quarter: 2016Q4

REPORT INFORMATION
  Report Type: Spontaneous
  Country: US (occurrence: US)
  Receive Date: 20161123
  Receipt Date: 20161219
  Transmission Date: 20170207
  Serious: Yes (Other)
  Sender: FDA-Public Use
  Company Number: US-BAYER-2016-219437

PATIENT
  Sex: Male

DRUGS (1)
  1. AVELOX [Suspect]
     Active Substance: MOXIFLOXACIN HYDROCHLORIDE
     Dosage: UNK
     Dates: start: 201304

REACTIONS (6)
  - Musculoskeletal disorder [None]
  - Skin injury [None]
  - Nervous system disorder [None]
  - Neuropathy peripheral [None]
  - Mental disorder [None]
  - Cardiovascular disorder [None]

NARRATIVE: CASE EVENT DATE: 201309
